FAERS Safety Report 11899887 (Version 1)
Quarter: 2016Q1

REPORT INFORMATION
  Report Type: Report from Study
  Country: US (occurrence: US)
  Receive Date: 20160108
  Receipt Date: 20160108
  Transmission Date: 20160526
  Serious: No
  Sender: FDA-Public Use
  Company Number: US-ABBVIE-15P-163-1435088-00

PATIENT
  Sex: Female

DRUGS (1)
  1. VIEKIRA PAK [Suspect]
     Active Substance: DASABUVIR\OMBITASVIR\PARITAPREVIR\RITONAVIR
     Indication: CHRONIC HEPATITIS C
     Dosage: OMBITASVIR/PARITAPREVIR/ROTONAVIR TAB 12.5MG/75MG/50MG 2QAM, DASABUVIR TAB 250MG 1BID
     Route: 048

REACTIONS (3)
  - Skin exfoliation [Unknown]
  - Asthenia [Unknown]
  - Peripheral swelling [Unknown]
